FAERS Safety Report 4626300-8 (Version None)
Quarter: 2005Q2

REPORT INFORMATION
  Report Type: 
  Country: None (occurrence: None)
  Receive Date: 20050404
  Receipt Date: 20050325
  Transmission Date: 20051028
  Serious: Yes (Life-Threatening)
  Sender: FDA-Public Use
  Company Number: JP-ROCHE-399951

PATIENT

DRUGS (1)
  1. TAMIFLU [Suspect]
     Route: 048
     Dates: start: 20050316

REACTIONS (1)
  - MENTAL DISORDER [None]
